FAERS Safety Report 5197967-3 (Version None)
Quarter: 2007Q1

REPORT INFORMATION
  Report Type: 
  Country: None (occurrence: None)
  Receive Date: 20070104
  Receipt Date: 20061228
  Transmission Date: 20070707
  Serious: Yes (Hospitalization)
  Sender: FDA-Public Use
  Company Number: PHEH2006US15575

PATIENT
  Sex: Male

DRUGS (1)
  1. LAMISIL [Suspect]
     Indication: NAIL TINEA
     Dosage: 250 MG, QD
     Route: 048
     Dates: start: 20060901, end: 20061218

REACTIONS (6)
  - ABDOMINAL PAIN [None]
  - BIOPSY BLADDER NORMAL [None]
  - BLADDER DISORDER [None]
  - DIAGNOSTIC PROCEDURE [None]
  - GASTROINTESTINAL DISORDER [None]
  - MALAISE [None]
